FAERS Safety Report 6286838-7 (Version None)
Quarter: 2009Q3

REPORT INFORMATION
  Report Type: 
  Country: None (occurrence: None)
  Receive Date: 20090727
  Receipt Date: 20090727
  Transmission Date: 20100115
  Serious: Yes (Other)
  Sender: FDA-Public Use
  Company Number: None

PATIENT
  Age: 69 Year
  Sex: Female
  Weight: 75.7507 kg

DRUGS (1)
  1. SIMVASTATIN [Suspect]
     Indication: BLOOD CHOLESTEROL INCREASED
     Dosage: 1 TABLET (10MG) EVERY NIGHT MOUTH
     Route: 048
     Dates: start: 20090317, end: 20090502

REACTIONS (6)
  - ALOPECIA [None]
  - DEPRESSION [None]
  - DRY SKIN [None]
  - FATIGUE [None]
  - PAIN [None]
  - VISION BLURRED [None]
